FAERS Safety Report 6376499-0 (Version None)
Quarter: 2009Q3

REPORT INFORMATION
  Report Type: 
  Country: None (occurrence: None)
  Receive Date: 20090925
  Receipt Date: 20090921
  Transmission Date: 20100115
  Serious: No
  Sender: FDA-Public Use
  Company Number: US-JNJFOC-20090603431

PATIENT
  Sex: Female
  Weight: 71.22 kg

DRUGS (7)
  1. DURAGESIC-100 [Suspect]
     Dosage: 2 PATCHES OF 100 UG/HR
     Route: 062
     Dates: start: 20090522
  2. DURAGESIC-100 [Suspect]
     Indication: PAIN
     Route: 062
     Dates: start: 20090522
  3. COPAXONE [Suspect]
     Indication: MULTIPLE SCLEROSIS
     Route: 058
     Dates: start: 19950101
  4. LEXAPRO [Concomitant]
     Indication: DEPRESSION
     Route: 048
  5. XANAX [Concomitant]
     Indication: MUSCLE RELAXANT THERAPY
     Dosage: 0.5 MG
     Route: 048
  6. CATAPRES [Concomitant]
     Indication: BLOOD PRESSURE
     Dosage: 0.8 MG
     Route: 048
  7. CATAPRES [Concomitant]
     Route: 062

REACTIONS (6)
  - APPLICATION SITE RASH [None]
  - APPLICATION SITE VESICLES [None]
  - DEVICE ADHESION ISSUE [None]
  - DRUG DISPENSING ERROR [None]
  - PRODUCT QUALITY ISSUE [None]
  - WRONG TECHNIQUE IN DRUG USAGE PROCESS [None]
